FAERS Safety Report 13277502 (Version 1)
Quarter: 2017Q1

REPORT INFORMATION
  Report Type: Report from Study
  Country: US (occurrence: US)
  Receive Date: 20170228
  Receipt Date: 20170228
  Transmission Date: 20170428
  Serious: Yes (Death, Hospitalization, Other)
  Sender: FDA-Public Use
  Company Number: US-BAYER-2016-032327

PATIENT
  Age: 54 Year
  Sex: Female
  Weight: 75.74 kg

DRUGS (8)
  1. ADEMPAS [Suspect]
     Active Substance: RIOCIGUAT
     Indication: PULMONARY HYPERTENSION
     Dosage: UNK
     Dates: start: 20150619
  2. ADEMPAS [Suspect]
     Active Substance: RIOCIGUAT
     Indication: PULMONARY HYPERTENSION
     Dosage: 2.5 MG, TID
     Route: 048
  3. ADEMPAS [Suspect]
     Active Substance: RIOCIGUAT
     Indication: PULMONARY HYPERTENSION
     Dosage: 2.5 MG, TID
     Route: 048
  4. ADEMPAS [Suspect]
     Active Substance: RIOCIGUAT
     Indication: PULMONARY HYPERTENSION
     Dosage: 2.5 MG, TID
     Route: 048
  5. ADEMPAS [Suspect]
     Active Substance: RIOCIGUAT
     Indication: PULMONARY HYPERTENSION
     Dosage: 2.5 MG, TID
     Route: 048
  6. ADEMPAS [Suspect]
     Active Substance: RIOCIGUAT
     Indication: PULMONARY HYPERTENSION
     Dosage: 2.5 MG, TID
     Route: 048
  7. REMODULIN [Concomitant]
     Active Substance: TREPROSTINIL
     Dosage: UNK
  8. TRACLEER [Concomitant]
     Active Substance: BOSENTAN
     Dosage: UNK

REACTIONS (16)
  - Fatigue [None]
  - Rash pruritic [None]
  - Dyspnoea [None]
  - Dyspnoea exertional [None]
  - Osteomyelitis [None]
  - Joint swelling [Unknown]
  - Dry skin [None]
  - Limb injury [None]
  - Localised infection [None]
  - Oedema peripheral [None]
  - Oxygen saturation decreased [None]
  - Somnolence [None]
  - Activities of daily living impaired [None]
  - Death [Fatal]
  - Dizziness [Unknown]
  - Hypotension [None]

NARRATIVE: CASE EVENT DATE: 20170223
